FAERS Safety Report 7941903-0 (Version None)
Quarter: 2011Q4

REPORT INFORMATION
  Report Type: 
  Country: None (occurrence: None)
  Receive Date: 20111018
  Receipt Date: 20111006
  Transmission Date: 20120403
  Serious: Yes (Other)
  Sender: FDA-Public Use
  Company Number: MIN-00756

PATIENT
  Age: 15 Year
  Sex: Female

DRUGS (1)
  1. MINOCYCLINE HCL [Suspect]
     Indication: ACNE

REACTIONS (3)
  - CHRONIC HEPATITIS [None]
  - HEPATIC FIBROSIS [None]
  - ANTINUCLEAR ANTIBODY POSITIVE [None]
